FAERS Safety Report 17980518 (Version 1)
Quarter: 2020Q3

REPORT INFORMATION
  Report Type: Spontaneous
  Country: RO (occurrence: RO)
  Receive Date: 20200704
  Receipt Date: 20200704
  Transmission Date: 20201103
  Serious: Yes (Other)
  Sender: FDA-Public Use
  Company Number: RO-AMGEN-ROUSP2020104950

PATIENT

DRUGS (1)
  1. BLINCYTO [Suspect]
     Active Substance: BLINATUMOMAB
     Indication: B PRECURSOR TYPE ACUTE LEUKAEMIA
     Dosage: UNK
     Route: 042

REACTIONS (8)
  - Myalgia [Unknown]
  - Blood urea increased [Unknown]
  - Neurological symptom [Unknown]
  - Hypotension [Unknown]
  - Pyrexia [Unknown]
  - Combined immunodeficiency [Unknown]
  - Drug ineffective [Unknown]
  - Hepatocellular injury [Recovering/Resolving]
